FAERS Safety Report 14069462 (Version 1)
Quarter: 2017Q4

REPORT INFORMATION
  Report Type: Spontaneous
  Country: DK (occurrence: DK)
  Receive Date: 20171010
  Receipt Date: 20171010
  Transmission Date: 20180321
  Serious: Yes (Other)
  Sender: FDA-Public Use
  Company Number: DK-GLAXOSMITHKLINE-DK2017153792

PATIENT
  Age: 78 Year
  Sex: Female

DRUGS (1)
  1. CEFUROXIM [Suspect]
     Active Substance: CEFUROXIME
     Indication: INFECTION
     Dosage: UNK
     Route: 042
     Dates: start: 20161005, end: 20161005

REACTIONS (3)
  - Dyspnoea [Recovered/Resolved]
  - Pharyngeal oedema [Recovered/Resolved]
  - Hypersensitivity [Recovered/Resolved]

NARRATIVE: CASE EVENT DATE: 20161005
